FAERS Safety Report 18104921 (Version 3)
Quarter: 2020Q3

REPORT INFORMATION
  Report Type: Spontaneous
  Country: US (occurrence: US)
  Receive Date: 20200803
  Receipt Date: 20200820
  Transmission Date: 20201103
  Serious: Yes (Other)
  Sender: FDA-Public Use
  Company Number: US-PFIZER INC-2020290977

PATIENT
  Age: 66 Year
  Sex: Female
  Weight: 60 kg

DRUGS (6)
  1. DURVALUMAB. [Suspect]
     Active Substance: DURVALUMAB
     Indication: HER2 POSITIVE BREAST CANCER
  2. PACLITAXEL. [Suspect]
     Active Substance: PACLITAXEL
     Indication: HER2 POSITIVE BREAST CANCER
  3. DURVALUMAB. [Suspect]
     Active Substance: DURVALUMAB
     Indication: BASAL CELL CARCINOMA
     Dosage: 1500 MG, CYCLIC(EVERY 4 WEEKS)
  4. OLAPARIB. [Suspect]
     Active Substance: OLAPARIB
     Indication: BASAL CELL CARCINOMA
     Dosage: 100 MG, 2X/DAY
     Route: 048
  5. PACLITAXEL. [Suspect]
     Active Substance: PACLITAXEL
     Indication: BASAL CELL CARCINOMA
     Dosage: 132 MG, CYCLIC(ONCE WEEKLY)
  6. OLAPARIB. [Suspect]
     Active Substance: OLAPARIB
     Indication: HER2 POSITIVE BREAST CANCER

REACTIONS (2)
  - Condition aggravated [Unknown]
  - Porokeratosis [Unknown]
